FAERS Safety Report 5287764-2 (Version None)
Quarter: 2007Q1

REPORT INFORMATION
  Report Type: 
  Country: None (occurrence: None)
  Receive Date: 20070117
  Receipt Date: 20060925
  Transmission Date: 20070707
  Serious: No
  Sender: FDA-Public Use
  Company Number: IPX00009

PATIENT
  Age: 14 Year
  Sex: Male
  Weight: 30 kg

DRUGS (1)
  1. IPLEX [Suspect]
     Indication: GROWTH RETARDATION
     Dosage: 15 MG/DAY/SC
     Route: 058
     Dates: start: 20060911

REACTIONS (4)
  - DIARRHOEA [None]
  - HEADACHE [None]
  - INJECTION SITE PAIN [None]
  - PYREXIA [None]
